FAERS Safety Report 4423783-3 (Version None)
Quarter: 2004Q3

REPORT INFORMATION
  Report Type: 
  Country: None (occurrence: None)
  Receive Date: 20040714
  Receipt Date: 20040604
  Transmission Date: 20050211
  Serious: Yes (Other)
  Sender: FDA-Public Use
  Company Number: HQWYE379209JUN04

PATIENT
  Age: 79 Year
  Sex: Female
  Weight: 49.03 kg

DRUGS (1)
  1. ALAVERT [Suspect]
     Indication: HYPERSENSITIVITY
     Dosage: 1 TABLET DAILY, ORAL
     Route: 048
     Dates: start: 20040601, end: 20040603

REACTIONS (1)
  - NAUSEA [None]
